FAERS Safety Report 17659400 (Version 1)
Quarter: 2020Q2

REPORT INFORMATION
  Report Type: Spontaneous
  Country: US (occurrence: US)
  Receive Date: 20200413
  Receipt Date: 20200413
  Transmission Date: 20200713
  Serious: No
  Sender: FDA-Public Use
  Company Number: US-BION-008046

PATIENT
  Age: 48 Year
  Sex: Male
  Weight: 73 kg

DRUGS (1)
  1. ALEVE [Suspect]
     Active Substance: NAPROXEN SODIUM
     Indication: PAIN
     Dosage: 1 IN THE MORNING + 1 AT NIGHT.?DRUG START DATE: 13-MAY-2019
     Route: 048
     Dates: start: 2016, end: 20190517

REACTIONS (2)
  - Product physical consistency issue [Unknown]
  - Incorrect product administration duration [Not Recovered/Not Resolved]

NARRATIVE: CASE EVENT DATE: 2016
